FAERS Safety Report 4563694-6 (Version None)
Quarter: 2005Q1

REPORT INFORMATION
  Report Type: 
  Country: None (occurrence: None)
  Receive Date: 20050125
  Receipt Date: 20050112
  Transmission Date: 20050727
  Serious: Yes (Death, Other)
  Sender: FDA-Public Use
  Company Number: 2005011842

PATIENT
  Age: 75 Year
  Sex: Male

DRUGS (3)
  1. ATARAX [Suspect]
     Indication: PREMEDICATION
     Dosage: 100MG/200 MG (1 IN 1 D), ORAL
     Route: 048
  2. CLORAZEPATE DIPOTASSIUM [Concomitant]
  3. ANTI-DIABETICS (ANTI-DIABETICS) [Concomitant]

REACTIONS (1)
  - AGITATION [None]
